FAERS Safety Report 10343208 (Version 3)
Quarter: 2020Q3

REPORT INFORMATION
  Report Type: Report from Study
  Country: IT (occurrence: IT)
  Receive Date: 20140725
  Receipt Date: 20140807
  Transmission Date: 20201104
  Serious: Yes (Hospitalization)
  Sender: FDA-Public Use
  Company Number: IT-JNJFOC-20140506495

PATIENT
  Age: 85 Year
  Sex: Male
  Weight: 68 kg

DRUGS (9)
  1. PREDNISONE. [Concomitant]
     Active Substance: PREDNISONE
     Indication: AUTOIMMUNE HAEMOLYTIC ANAEMIA
     Route: 048
     Dates: start: 20140319
  2. OMEPRAZOLE. [Concomitant]
     Active Substance: OMEPRAZOLE
     Indication: PROPHYLAXIS
     Route: 048
  3. FOLATE [Concomitant]
     Active Substance: FOLATE SODIUM
     Indication: AUTOIMMUNE HAEMOLYTIC ANAEMIA
     Route: 048
  4. ENOXAPARIN [Concomitant]
     Active Substance: ENOXAPARIN
     Indication: PROPHYLAXIS
     Route: 058
     Dates: start: 20140219
  5. IBRUTINIB [Suspect]
     Active Substance: IBRUTINIB
     Route: 048
  6. METOPROLOL. [Concomitant]
     Active Substance: METOPROLOL
     Indication: CARDIAC DISORDER
     Route: 048
     Dates: start: 20140219
  7. IBRUTINIB [Suspect]
     Active Substance: IBRUTINIB
     Indication: CHRONIC LYMPHOCYTIC LEUKAEMIA
     Route: 048
     Dates: start: 20131127, end: 20140323
  8. LASITONE [Concomitant]
     Active Substance: FUROSEMIDE\SPIRONOLACTONE
     Indication: CARDIAC DISORDER
     Route: 048
     Dates: start: 20140305
  9. METOPROLOL. [Concomitant]
     Active Substance: METOPROLOL
     Indication: CARDIAC DISORDER
     Route: 048
     Dates: start: 20140219

REACTIONS (1)
  - Atrial flutter [Recovered/Resolved]

NARRATIVE: CASE EVENT DATE: 20140327
